FAERS Safety Report 6299440-8 (Version None)
Quarter: 2009Q3

REPORT INFORMATION
  Report Type: 
  Country: None (occurrence: None)
  Receive Date: 20090806
  Receipt Date: 20090730
  Transmission Date: 20100115
  Serious: Yes (Disabling, Other)
  Sender: FDA-Public Use
  Company Number: A0797328A

PATIENT
  Age: 77 Year
  Sex: Male

DRUGS (2)
  1. ARIXTRA [Suspect]
     Indication: HIP SURGERY
     Dosage: 2.5MG PER DAY
     Route: 058
     Dates: start: 20090713, end: 20090715
  2. BLOOD THINNER [Concomitant]

REACTIONS (3)
  - EPISTAXIS [None]
  - HAEMORRHAGE [None]
  - ILL-DEFINED DISORDER [None]
